FAERS Safety Report 4529907-1 (Version None)
Quarter: 2004Q4

REPORT INFORMATION
  Report Type: 
  Country: None (occurrence: None)
  Receive Date: 20041214
  Receipt Date: 20041129
  Transmission Date: 20050328
  Serious: Yes (Disabling, Other)
  Sender: FDA-Public Use
  Company Number: 2004088739

PATIENT
  Age: 51 Year
  Sex: Male

DRUGS (9)
  1. BEXTRA [Suspect]
     Indication: ARTHRALGIA
     Dosage: 40 MG (20 MG, 2 IN 1 D)
     Dates: start: 20040301
  2. VARDENAFIL HYDROCHLORIDE (VARDENAFIL HYDROCHLORIDE) [Suspect]
     Indication: ERECTILE DYSFUNCTION
     Dosage: 20 MG (20 MG, 2 IN 1 WK), ORAL
     Route: 048
     Dates: start: 20040201
  3. LOTREL [Concomitant]
  4. CARVEDILOL [Concomitant]
  5. METFORMIN HCL [Concomitant]
  6. ROSIGLITAZONE MALEATE [Concomitant]
  7. GLIMEPIRIDE [Concomitant]
  8. METFORMIN HCL [Concomitant]
  9. BUPROPION HYDROCHLORIDE [Concomitant]

REACTIONS (12)
  - BLOOD GLUCOSE INCREASED [None]
  - BLOOD HOMOCYSTEINE INCREASED [None]
  - BLOOD TRIGLYCERIDES INCREASED [None]
  - C-REACTIVE PROTEIN INCREASED [None]
  - CARDIAC FAILURE [None]
  - GLYCOSYLATED HAEMOGLOBIN INCREASED [None]
  - HAEMATOCRIT DECREASED [None]
  - IMPAIRED WORK ABILITY [None]
  - LOW DENSITY LIPOPROTEIN DECREASED [None]
  - OEDEMA [None]
  - PROTEIN TOTAL DECREASED [None]
  - RED BLOOD CELL COUNT DECREASED [None]
